FAERS Safety Report 25233582 (Version 1)
Quarter: 2025Q2

REPORT INFORMATION
  Report Type: Report from Study
  Country: US (occurrence: US)
  Receive Date: 20250424
  Receipt Date: 20250424
  Transmission Date: 20250717
  Serious: Yes (Other)
  Sender: ACADIA PHARMACEUTICALS
  Company Number: US-ACADIA PHARMACEUTICALS INC.-ACA-2025-PIM-004549

PATIENT
  Age: 79 Year
  Sex: Male

DRUGS (13)
  1. NUPLAZID [Suspect]
     Active Substance: PIMAVANSERIN TARTRATE
     Indication: Hallucination
     Dosage: 34 MILLIGRAM, QD
     Route: 048
     Dates: start: 20241112
  2. ALBUTEROL [Concomitant]
     Active Substance: ALBUTEROL
  3. ALPRAZOLAM [Concomitant]
     Active Substance: ALPRAZOLAM
  4. BENZONATATE [Concomitant]
     Active Substance: BENZONATATE
  5. BUDESONIDE [Concomitant]
     Active Substance: BUDESONIDE
  6. CARVEDILOL [Concomitant]
     Active Substance: CARVEDILOL
  7. LEVOCETIRIZINE [Concomitant]
     Active Substance: LEVOCETIRIZINE
  8. LOSARTAN [Concomitant]
     Active Substance: LOSARTAN
  9. MOMETASONE [Concomitant]
     Active Substance: MOMETASONE
  10. RAMELTEON [Concomitant]
     Active Substance: RAMELTEON
  11. REXULTI [Concomitant]
     Active Substance: BREXPIPRAZOLE
  12. RYTARY [Concomitant]
     Active Substance: CARBIDOPA\LEVODOPA
  13. TAMSULOSIN [Concomitant]
     Active Substance: TAMSULOSIN

REACTIONS (2)
  - Hallucination [Not Recovered/Not Resolved]
  - Aggression [Not Recovered/Not Resolved]

NARRATIVE: CASE EVENT DATE: 20250215
